FAERS Safety Report 17828363 (Version 1)
Quarter: 2020Q2

REPORT INFORMATION
  Report Type: Spontaneous
  Country: US (occurrence: US)
  Receive Date: 20200527
  Receipt Date: 20200527
  Transmission Date: 20200714
  Serious: Yes (Hospitalization, Other)
  Sender: FDA-Public Use
  Company Number: US-HIKMA PHARMACEUTICALS USA INC.-US-H14001-20-51385

PATIENT
  Age: 5 Year
  Sex: Male

DRUGS (3)
  1. PLASMA-LYTE [Concomitant]
     Active Substance: ELECTROLYTES NOS
     Indication: PRODUCT USED FOR UNKNOWN INDICATION
     Route: 065
  2. CISPLATIN. [Suspect]
     Active Substance: CISPLATIN
     Indication: HYPERTHERMIC CHEMOTHERAPY
     Route: 065
  3. SODIUM THIOSULFATE [Concomitant]
     Active Substance: SODIUM THIOSULFATE
     Indication: NEPHROPROTECTIVE THERAPY
     Route: 065

REACTIONS (2)
  - Urinary tract infection enterococcal [Recovered/Resolved]
  - Postoperative ileus [Recovering/Resolving]
